FAERS Safety Report 5914107-0 (Version None)
Quarter: 2008Q4

REPORT INFORMATION
  Report Type: 
  Country: None (occurrence: None)
  Receive Date: 20081009
  Receipt Date: 20081001
  Transmission Date: 20090506
  Serious: Yes (Hospitalization)
  Sender: FDA-Public Use
  Company Number: BR-SANOFI-SYNTHELABO-A01200812122

PATIENT
  Sex: Male
  Weight: 78 kg

DRUGS (4)
  1. ZOFRAN [Concomitant]
     Route: 042
  2. DECADRON [Concomitant]
     Route: 042
  3. ELOXATIN [Suspect]
     Indication: RECTAL CANCER
     Route: 042
     Dates: start: 20080902, end: 20080902
  4. CAPECITABINE [Concomitant]
     Indication: RECTAL CANCER
     Dosage: 1000 MG/M2 BID (FOR 14 DAYS)
     Route: 048

REACTIONS (1)
  - BLISTER [None]
